FAERS Safety Report 13917776 (Version 3)
Quarter: 2017Q4

REPORT INFORMATION
  Report Type: Spontaneous
  Country: US (occurrence: US)
  Receive Date: 20170829
  Receipt Date: 20171011
  Transmission Date: 20180320
  Serious: Yes (Hospitalization, Other)
  Sender: FDA-Public Use
  Company Number: US-DSJP-DSU-2017-132129

PATIENT

DRUGS (1)
  1. BENICAR HCT [Suspect]
     Active Substance: HYDROCHLOROTHIAZIDE\OLMESARTAN MEDOXOMIL
     Indication: PRODUCT USED FOR UNKNOWN INDICATION
     Dosage: UNK
     Dates: start: 201212

REACTIONS (7)
  - Gastritis [Unknown]
  - Weight decreased [Unknown]
  - Fatigue [Unknown]
  - Cholecystectomy [Unknown]
  - Muscle spasms [Unknown]
  - Diarrhoea [Unknown]
  - Small intestinal obstruction [Unknown]
